FAERS Safety Report 15049144 (Version 1)
Quarter: 2018Q2

REPORT INFORMATION
  Report Type: Spontaneous
  Country: US (occurrence: US)
  Receive Date: 20180622
  Receipt Date: 20180622
  Transmission Date: 20180711
  Serious: No
  Sender: FDA-Public Use
  Company Number: US-BAYER-2018-112567

PATIENT
  Sex: Female
  Weight: 62 kg

DRUGS (1)
  1. CLARITIN [Suspect]
     Active Substance: LORATADINE
     Indication: COUGH
     Dosage: 0.5 DF, UNK
     Route: 048
     Dates: start: 20180611, end: 20180611

REACTIONS (6)
  - Wrong technique in product usage process [Unknown]
  - Product physical issue [Unknown]
  - Cough [Recovered/Resolved]
  - Poor quality drug administered [Unknown]
  - Product use in unapproved indication [Unknown]
  - Off label use [Unknown]

NARRATIVE: CASE EVENT DATE: 20180611
